FAERS Safety Report 8115377-3 (Version None)
Quarter: 2012Q1

REPORT INFORMATION
  Report Type: 
  Country: None (occurrence: None)
  Receive Date: 20120206
  Receipt Date: 20120206
  Transmission Date: 20120608
  Serious: Yes (Life-Threatening)
  Sender: FDA-Public Use
  Company Number: None

PATIENT
  Age: 59 Year
  Sex: Female
  Weight: 90.718 kg

DRUGS (1)
  1. MOBIC [Suspect]

REACTIONS (4)
  - DYSPNOEA [None]
  - OEDEMA PERIPHERAL [None]
  - GASTROINTESTINAL PAIN [None]
  - CARDIAC FAILURE CONGESTIVE [None]
